FAERS Safety Report 5809948-4 (Version None)
Quarter: 2008Q3

REPORT INFORMATION
  Report Type: 
  Country: None (occurrence: None)
  Receive Date: 20080714
  Receipt Date: 20080714
  Transmission Date: 20090109
  Serious: Yes (Disabling, Other)
  Sender: FDA-Public Use
  Company Number: None

PATIENT
  Age: 40 Year
  Sex: Female
  Weight: 61.2356 kg

DRUGS (3)
  1. LEVAQUIN [Suspect]
     Indication: SINUSITIS
     Dosage: 500MG DAILY PO
     Route: 048
  2. MOXIFLOXACIN HCL [Suspect]
     Indication: PNEUMONIA
     Dosage: DAILY, 14 DAYS
  3. QUINOLONE [Concomitant]

REACTIONS (6)
  - HYPOAESTHESIA [None]
  - NEUROPATHY PERIPHERAL [None]
  - PAIN IN EXTREMITY [None]
  - PARAESTHESIA [None]
  - TENDON PAIN [None]
  - TENDON RUPTURE [None]
